FAERS Safety Report 8341224-0 (Version None)
Quarter: 2012Q2

REPORT INFORMATION
  Report Type: 
  Country: None (occurrence: None)
  Receive Date: 20120507
  Receipt Date: 20120426
  Transmission Date: 20120825
  Serious: Yes (Hospitalization, Other)
  Sender: FDA-Public Use
  Company Number: CA-JNJFOC-20120313486

PATIENT
  Sex: Female
  Weight: 80 kg

DRUGS (2)
  1. PREDNISONE [Concomitant]
     Route: 065
  2. REMICADE [Suspect]
     Indication: COLITIS ULCERATIVE
     Dosage: FIRST LOADING DOSE
     Route: 042
     Dates: start: 20120313

REACTIONS (3)
  - MYOCARDIAL INFARCTION [None]
  - LISTERIOSIS [None]
  - SEPSIS [None]
